FAERS Safety Report 16805816 (Version 1)
Quarter: 2019Q3

REPORT INFORMATION
  Report Type: Spontaneous
  Country: CN (occurrence: CN)
  Receive Date: 20190913
  Receipt Date: 20190913
  Transmission Date: 20191005
  Serious: Yes (Life-Threatening)
  Sender: FDA-Public Use
  Company Number: CN-ASTRAZENECA-2019SF29587

PATIENT
  Age: 57 Year
  Sex: Male
  Weight: 85 kg

DRUGS (2)
  1. ESOMEPRAZOLE SODIUM. [Suspect]
     Active Substance: ESOMEPRAZOLE SODIUM
     Indication: FAECES DISCOLOURED
     Route: 041
     Dates: start: 20190907, end: 20190907
  2. ESOMEPRAZOLE SODIUM. [Suspect]
     Active Substance: ESOMEPRAZOLE SODIUM
     Indication: ABDOMINAL PAIN
     Route: 041
     Dates: start: 20190907, end: 20190907

REACTIONS (10)
  - Pain in extremity [Unknown]
  - Nausea [Unknown]
  - Chest discomfort [Unknown]
  - Hyperhidrosis [Unknown]
  - Respiration abnormal [Unknown]
  - Head discomfort [Unknown]
  - Heart rate abnormal [Unknown]
  - Anaphylactic shock [Recovered/Resolved]
  - Hypoaesthesia [Unknown]
  - Hypotension [Unknown]

NARRATIVE: CASE EVENT DATE: 20190907
